FAERS Safety Report 12004859 (Version 1)
Quarter: 2016Q1

REPORT INFORMATION
  Report Type: Report from Study
  Country: US (occurrence: US)
  Receive Date: 20160204
  Receipt Date: 20160204
  Transmission Date: 20160526
  Serious: No
  Sender: FDA-Public Use
  Company Number: US-ABBVIE-15K-163-1435345-00

PATIENT
  Age: 63 Year
  Sex: Female
  Weight: 54.03 kg

DRUGS (4)
  1. HUMIRA [Suspect]
     Active Substance: ADALIMUMAB
     Route: 058
     Dates: start: 20150521, end: 20150521
  2. HUMIRA [Suspect]
     Active Substance: ADALIMUMAB
     Route: 058
     Dates: start: 20150618
  3. HUMIRA [Suspect]
     Active Substance: ADALIMUMAB
     Indication: CROHN^S DISEASE
     Route: 058
     Dates: start: 2012, end: 2012
  4. HUMIRA [Suspect]
     Active Substance: ADALIMUMAB
     Route: 058
     Dates: start: 20150604, end: 20150604

REACTIONS (8)
  - Diarrhoea [Recovered/Resolved]
  - Cystitis [Recovered/Resolved]
  - Anxiety [Not Recovered/Not Resolved]
  - Psoriasis [Recovering/Resolving]
  - Injection site pain [Not Recovered/Not Resolved]
  - Clostridium difficile infection [Recovered/Resolved]
  - Diarrhoea [Recovered/Resolved]
  - Appendicitis [Unknown]

NARRATIVE: CASE EVENT DATE: 201405
